FAERS Safety Report 7690391-0 (Version None)
Quarter: 2011Q3

REPORT INFORMATION
  Report Type: 
  Country: None (occurrence: None)
  Receive Date: 20110818
  Receipt Date: 20110803
  Transmission Date: 20111222
  Serious: No
  Sender: FDA-Public Use
  Company Number: PHEH2011US01667

PATIENT
  Sex: Male

DRUGS (5)
  1. LIPITOR [Concomitant]
  2. TASIGNA [Suspect]
     Dosage: 200 MG, BID
     Route: 048
  3. TASIGNA [Suspect]
     Indication: LEUKAEMIA
     Dosage: 400 MG, BID
     Route: 048
     Dates: start: 20100126
  4. DAILY VITAMINS [Concomitant]
  5. ATENOLOL [Concomitant]

REACTIONS (1)
  - WHITE BLOOD CELL COUNT DECREASED [None]
